FAERS Safety Report 22400478 (Version 2)
Quarter: 2023Q2

REPORT INFORMATION
  Report Type: Spontaneous
  Country: DE (occurrence: DE)
  Receive Date: 20230602
  Receipt Date: 20230623
  Transmission Date: 20230722
  Serious: Yes (Other)
  Sender: FDA-Public Use
  Company Number: None

PATIENT
  Age: 79 Year
  Sex: Male
  Weight: 81 kg

DRUGS (12)
  1. SIMVASTATIN [Suspect]
     Active Substance: SIMVASTATIN
     Indication: Hypercholesterolaemia
     Dosage: 0-0-1
     Route: 048
     Dates: start: 20221106
  2. SIMVASTATIN [Suspect]
     Active Substance: SIMVASTATIN
     Indication: Carotid arteriosclerosis
  3. SIMVASTATIN [Suspect]
     Active Substance: SIMVASTATIN
     Indication: Coronary artery disease
  4. ATORVASTATIN [Suspect]
     Active Substance: ATORVASTATIN
     Dosage: 0-0-1
     Dates: start: 2020, end: 20200427
  5. ROSUVASTATIN CALCIUM [Suspect]
     Active Substance: ROSUVASTATIN CALCIUM
     Dosage: 0-0-1
  6. ROSUVASTATIN [Suspect]
     Active Substance: ROSUVASTATIN
     Dosage: 0-0-1
     Dates: start: 20200529
  7. ROSUVASTATIN [Suspect]
     Active Substance: ROSUVASTATIN
     Dosage: 0-0-1
     Dates: start: 20200428
  8. BISOPROLOL [Concomitant]
     Active Substance: BISOPROLOL
     Indication: Atrial fibrillation
     Dosage: 1-0-1
     Route: 048
     Dates: start: 2020
  9. TAMSULOSIN [Concomitant]
     Active Substance: TAMSULOSIN
     Indication: Benign prostatic hyperplasia
     Dosage: 0-0-1
     Route: 048
     Dates: start: 2022
  10. TICAGRELOR [Concomitant]
     Active Substance: TICAGRELOR
     Dosage: 1-0-1
     Dates: start: 20201208, end: 202102
  11. ASPIRIN [Concomitant]
     Active Substance: ASPIRIN
     Indication: Coronary artery disease
     Dosage: 1-0-0
     Route: 048
     Dates: start: 20201208
  12. CANDESARTAN [Concomitant]
     Active Substance: CANDESARTAN
     Dosage: 2 MG 1-0-1
     Route: 048
     Dates: start: 20201213

REACTIONS (9)
  - Leukaemia [Unknown]
  - Skin mass [Unknown]
  - Pruritus [Unknown]
  - Arthralgia [Unknown]
  - Hypersensitivity [Unknown]
  - Performance status decreased [Recovering/Resolving]
  - Leukocytosis [Unknown]
  - Haematocrit increased [Unknown]
  - Chronic myeloid leukaemia [Unknown]

NARRATIVE: CASE EVENT DATE: 20200401
